FAERS Safety Report 4414306-3 (Version None)
Quarter: 2004Q3

REPORT INFORMATION
  Report Type: 
  Country: None (occurrence: None)
  Receive Date: 20040729
  Receipt Date: 20040721
  Transmission Date: 20050211
  Serious: No
  Sender: FDA-Public Use
  Company Number: B0340014A

PATIENT
  Age: 57 Year
  Sex: Male

DRUGS (8)
  1. EPIVIR [Suspect]
     Indication: HIV INFECTION
     Dosage: 150 MG/TWICE PER DAY
  2. STAVUDINE (STAVUDINE) [Suspect]
     Indication: HIV INFECTION
     Dosage: 40 MG/TWICE PER DAY
  3. INDINAVIR SULFATE (INDINAVIR SULFATE) [Suspect]
     Indication: HIV INFECTION
     Dosage: 800 MG / TWICE PER DAY
  4. RITONAVIR (RITONAVIR) [Suspect]
     Indication: HIV INFECTION
     Dosage: 200 MG/ TWICE PER DAY
  5. PACLITAXEL [Suspect]
     Dosage: 100 MG/M2
  6. DOXORUBICIN HCL [Concomitant]
  7. GRANULOCYTE COL.STIM.FACT [Concomitant]
  8. ANTIBIOTICS [Concomitant]

REACTIONS (12)
  - ALOPECIA [None]
  - BLOOD CULTURE POSITIVE [None]
  - DISEASE PROGRESSION [None]
  - DRUG INTERACTION [None]
  - KAPOSI'S SARCOMA [None]
  - OEDEMA PERIPHERAL [None]
  - PLATELET COUNT DECREASED [None]
  - PYREXIA [None]
  - SCROTAL SWELLING [None]
  - STAPHYLOCOCCAL INFECTION [None]
  - THERAPY NON-RESPONDER [None]
  - WHITE BLOOD CELL COUNT DECREASED [None]
